FAERS Safety Report 10464780 (Version 2)
Quarter: 2014Q3

REPORT INFORMATION
  Report Type: Report from Study
  Country: CA (occurrence: CA)
  Receive Date: 20140919
  Receipt Date: 20140919
  Transmission Date: 20150326
  Serious: Yes (Other)
  Sender: FDA-Public Use
  Company Number: CA-ABBVIE-14P-028-1202525-00

PATIENT
  Sex: Female

DRUGS (2)
  1. HUMIRA [Suspect]
     Active Substance: ADALIMUMAB
     Indication: CROHN^S DISEASE
  2. HUMIRA [Suspect]
     Active Substance: ADALIMUMAB
     Indication: CROHN^S DISEASE
     Dosage: LATEST DOSE: 12-SEP-2014
     Route: 058
     Dates: start: 20130925

REACTIONS (6)
  - Gingival erythema [Recovered/Resolved]
  - Crohn^s disease [Unknown]
  - Gingival inflammation [Not Recovered/Not Resolved]
  - Gingival bleeding [Recovered/Resolved]
  - Gingival swelling [Recovered/Resolved]
  - Mass [Not Recovered/Not Resolved]

NARRATIVE: CASE EVENT DATE: 2014
